FAERS Safety Report 5972742-8 (Version None)
Quarter: 2008Q4

REPORT INFORMATION
  Report Type: 
  Country: None (occurrence: None)
  Receive Date: 20081201
  Receipt Date: 20081120
  Transmission Date: 20090506
  Serious: Yes (Hospitalization)
  Sender: FDA-Public Use
  Company Number: JP-EISAI MEDICAL RESEARCH-E2090-00597-SPO-JP

PATIENT
  Age: 31 Year
  Sex: Female

DRUGS (15)
  1. EXCEGRAN [Suspect]
     Indication: CONVULSION
     Dosage: UNKNOWN
     Route: 048
  2. EXCEGRAN [Suspect]
     Route: 048
  3. EXCEGRAN [Suspect]
     Dosage: DOSE REDUCED
     Route: 048
  4. EXCEGRAN [Suspect]
     Dosage: DOSE TAPERED AND DISCONTINUED
     Route: 048
  5. RISPERIDONE [Suspect]
     Indication: DRUG USE FOR UNKNOWN INDICATION
     Route: 048
  6. RISPERIDONE [Suspect]
     Route: 048
  7. RISPERIDONE [Suspect]
     Route: 048
  8. RISPERIDONE [Suspect]
     Route: 048
  9. RISPERIDONE [Suspect]
     Dosage: DOSE TAPERED AND DISCONTINUED.
     Route: 048
  10. CARBAMAZEPINE [Suspect]
     Indication: ELECTROENCEPHALOGRAM ABNORMAL
     Dosage: UNKNOWN
     Route: 048
  11. CARBAMAZEPINE [Suspect]
     Route: 048
  12. CARBAMAZEPINE [Suspect]
     Route: 048
  13. ACETAZOLAMIDE [Suspect]
     Indication: CONVULSION
     Dosage: UNKNOWN
     Route: 048
  14. ACETAZOLAMIDE [Suspect]
     Route: 048
  15. ANTI-PSYCHOTIC MEDICATION [Concomitant]

REACTIONS (2)
  - METABOLIC ENCEPHALOPATHY [None]
  - PSYCHIATRIC SYMPTOM [None]
